FAERS Safety Report 4361607-3 (Version None)
Quarter: 2004Q2

REPORT INFORMATION
  Report Type: 
  Country: None (occurrence: None)
  Receive Date: 20040521
  Receipt Date: 20040409
  Transmission Date: 20050107
  Serious: No
  Sender: FDA-Public Use
  Company Number: US-GLAXOSMITHKLINE-A0506499A

PATIENT
  Age: 44 Month
  Sex: Female

DRUGS (2)
  1. WELLBUTRIN SR [Suspect]
     Indication: DEPRESSION
     Route: 048
  2. ALCOHOL [Concomitant]

REACTIONS (3)
  - AGITATION [None]
  - TREMOR [None]
  - WEIGHT DECREASED [None]
